FAERS Safety Report 9445380 (Version 2)
Quarter: 2013Q3

REPORT INFORMATION
  Report Type: Spontaneous
  Country: US (occurrence: US)
  Receive Date: 20130807
  Receipt Date: 20130816
  Transmission Date: 20140515
  Serious: No
  Sender: FDA-Public Use
  Company Number: US-PFIZER INC-2013228728

PATIENT
  Sex: Male

DRUGS (2)
  1. EFFEXOR [Suspect]
     Dosage: 75 MG, UNK
  2. LIPITOR [Concomitant]
     Dosage: 10 MG, UNK

REACTIONS (3)
  - Insomnia [Unknown]
  - Feeling jittery [Unknown]
  - Decreased appetite [Unknown]
